FAERS Safety Report 21213562 (Version 2)
Quarter: 2024Q1

REPORT INFORMATION
  Report Type: Report from Study
  Country: BR (occurrence: BR)
  Receive Date: 20220815
  Receipt Date: 20240130
  Transmission Date: 20240410
  Serious: Yes (Disabling)
  Sender: FDA-Public Use
  Company Number: BR-ABBVIE-22K-020-4501752-00

PATIENT
  Sex: Female
  Weight: 63 kg

DRUGS (1)
  1. RINVOQ [Suspect]
     Active Substance: UPADACITINIB
     Indication: Rheumatoid arthritis
     Route: 048
     Dates: start: 20210831, end: 20220525

REACTIONS (5)
  - Feeding disorder [Unknown]
  - Dyspepsia [Recovered/Resolved]
  - Peptic ulcer [Unknown]
  - Unevaluable event [Recovered/Resolved]
  - Abdominal pain upper [Recovering/Resolving]

NARRATIVE: CASE EVENT DATE: 20220101
